FAERS Safety Report 20030161 (Version 1)
Quarter: 2021Q4

REPORT INFORMATION
  Report Type: Report from Study
  Country: AT (occurrence: AT)
  Receive Date: 20211103
  Receipt Date: 20211103
  Transmission Date: 20220303
  Serious: Yes (Hospitalization)
  Sender: FDA-Public Use
  Company Number: AT-BoehringerIngelheim-2021-BI-135779

PATIENT
  Sex: Male

DRUGS (15)
  1. TAMSULOSIN [Suspect]
     Active Substance: TAMSULOSIN
     Indication: Product used for unknown indication
     Dosage: UNKNOWN FREQ.
  2. QUETIAPINE [Suspect]
     Active Substance: QUETIAPINE
     Indication: Dementia
     Dosage: 25 MG, OTHER (25MG (FREQUENCY 0-0-0-1/2); ORAL
     Route: 048
  3. ASPIRIN [Suspect]
     Active Substance: ASPIRIN
     Indication: Product used for unknown indication
     Dosage: UNKNOWN FREQ.
  4. PANTOPRAZOLE [Suspect]
     Active Substance: PANTOPRAZOLE
     Indication: Product used for unknown indication
     Dosage: UNKNOWN FREQ.
  5. LINAGLIPTIN [Suspect]
     Active Substance: LINAGLIPTIN
     Indication: Product used for unknown indication
     Dosage: UNKNOWN FREQ.
  6. GLUCOBAY [Suspect]
     Active Substance: ACARBOSE
     Indication: Product used for unknown indication
     Dosage: UNKNOWN FREQ.
  7. CITALOPRAM [Suspect]
     Active Substance: CITALOPRAM HYDROBROMIDE
     Indication: Product used for unknown indication
     Dosage: UNKNOWN FREQ.
  8. DIETARY SUPPLEMENT\HERBALS\MILK THISTLE [Suspect]
     Active Substance: DIETARY SUPPLEMENT\HERBALS\MILK THISTLE
     Indication: Product used for unknown indication
     Dosage: UNKNOWN FREQ.
  9. FINASTERIDE [Suspect]
     Active Substance: FINASTERIDE
     Indication: Product used for unknown indication
     Dosage: UNKNOWN FREQ.
  10. ATORVASTATIN [Suspect]
     Active Substance: ATORVASTATIN
     Indication: Product used for unknown indication
     Dosage: UNKNOWN FREQ.
  11. CANRENOATE POTASSIUM [Suspect]
     Active Substance: CANRENOATE POTASSIUM
     Indication: Product used for unknown indication
     Dosage: UNKNOWN FREQ.
  12. AMOXICILLIN\CLAVULANATE POTASSIUM [Suspect]
     Active Substance: AMOXICILLIN\CLAVULANATE POTASSIUM
     Indication: Product used for unknown indication
     Dosage: UNKNOWN FREQ.
  13. LASIX [Suspect]
     Active Substance: FUROSEMIDE
     Indication: Product used for unknown indication
     Dosage: UNKNOWN FREQ.
  14. HUMALOG [Suspect]
     Active Substance: INSULIN LISPRO
     Indication: Product used for unknown indication
     Dosage: UNKNOWN FREQ.
  15. LOVENOX [Suspect]
     Active Substance: ENOXAPARIN SODIUM
     Indication: Product used for unknown indication
     Dosage: UNKNOWN FREQ.

REACTIONS (2)
  - Fall [Unknown]
  - Off label use [Unknown]
